FAERS Safety Report 21366191 (Version 6)
Quarter: 2023Q1

REPORT INFORMATION
  Report Type: Spontaneous
  Country: CA (occurrence: CA)
  Receive Date: 20220922
  Receipt Date: 20230206
  Transmission Date: 20230417
  Serious: Yes (Other)
  Sender: FDA-Public Use
  Company Number: CA-CELLTRION INC.-2022CA003958

PATIENT

DRUGS (15)
  1. INFLECTRA [Suspect]
     Active Substance: INFLIXIMAB-DYYB
     Indication: Crohn^s disease
     Dosage: 500 MG 0, 2, 6 WEEKS, THEN EVERY 8 WEEKS
     Route: 042
     Dates: start: 20170301, end: 20171122
  2. INFLECTRA [Suspect]
     Active Substance: INFLIXIMAB-DYYB
     Dosage: 5 MG/KG (OR 500 MG) EVERY 6 WEEKS
     Route: 042
     Dates: start: 20180116
  3. INFLECTRA [Suspect]
     Active Substance: INFLIXIMAB-DYYB
     Dosage: 5 MG/KG (OR 500 MG) EVERY 6 WEEKS
     Route: 042
     Dates: start: 20211228
  4. INFLECTRA [Suspect]
     Active Substance: INFLIXIMAB-DYYB
     Dosage: 5 MG/KG (OR 500 MG) EVERY 6 WEEKS
     Route: 042
     Dates: start: 20220216
  5. INFLECTRA [Suspect]
     Active Substance: INFLIXIMAB-DYYB
     Dosage: 5 MG/KG (OR 500 MG) EVERY 6 WEEKS
     Route: 042
     Dates: start: 20220511
  6. INFLECTRA [Suspect]
     Active Substance: INFLIXIMAB-DYYB
     Dosage: 5 MG/KG (OR 500 MG) EVERY 6 WEEKS
     Route: 042
     Dates: start: 20220615
  7. INFLECTRA [Suspect]
     Active Substance: INFLIXIMAB-DYYB
     Dosage: 5 MG/KG (OR 500 MG) EVERY 6 WEEKS
     Route: 042
     Dates: start: 20220725
  8. INFLECTRA [Suspect]
     Active Substance: INFLIXIMAB-DYYB
     Dosage: 5 MG/KG (OR 500 MG) EVERY 6 WEEKS
     Route: 042
     Dates: start: 20220923
  9. INFLECTRA [Suspect]
     Active Substance: INFLIXIMAB-DYYB
     Dosage: 5 MG/KG (OR 500 MG) EVERY 6 WEEKS
     Route: 042
     Dates: start: 20221213
  10. INFLECTRA [Suspect]
     Active Substance: INFLIXIMAB-DYYB
     Dosage: 500 MG EVERY 6 WEEKS (5 MG/KG)
     Route: 042
     Dates: start: 20230126
  11. ADVAIR HFA [Concomitant]
     Active Substance: FLUTICASONE PROPIONATE\SALMETEROL XINAFOATE
     Dosage: UNK
  12. BRICANYL [Concomitant]
     Active Substance: TERBUTALINE SULFATE
     Dosage: UNK
  13. CALCIUM [Concomitant]
     Active Substance: CALCIUM
     Dosage: UNK
  14. ENTOCORT [Concomitant]
     Active Substance: BUDESONIDE
     Dosage: UNK
  15. SYMBICORT [Concomitant]
     Active Substance: BUDESONIDE\FORMOTEROL FUMARATE DIHYDRATE
     Dosage: UNK

REACTIONS (8)
  - Localised infection [Recovered/Resolved]
  - Off label use [Unknown]
  - Incorrect dose administered [Unknown]
  - Off label use [Unknown]
  - Intentional product use issue [Unknown]
  - Anal fissure haemorrhage [Recovered/Resolved]
  - Condition aggravated [Recovered/Resolved]
  - Contraindication to medical treatment [Unknown]

NARRATIVE: CASE EVENT DATE: 20220101
